FAERS Safety Report 6587840-8 (Version None)
Quarter: 2010Q1

REPORT INFORMATION
  Report Type: 
  Country: None (occurrence: None)
  Receive Date: 20100218
  Receipt Date: 20100216
  Transmission Date: 20100710
  Serious: Yes (Death)
  Sender: FDA-Public Use
  Company Number: PHHY2010AR08579

PATIENT
  Sex: Male

DRUGS (1)
  1. EXELON [Suspect]
     Indication: DEMENTIA ALZHEIMER'S TYPE
     Dosage: 03 MG, DAILY
     Dates: start: 20040101

REACTIONS (2)
  - CARDIAC DISORDER [None]
  - NERVOUS SYSTEM DISORDER [None]
